FAERS Safety Report 9219394 (Version 1)
Quarter: 2013Q2

REPORT INFORMATION
  Report Type: Spontaneous
  Country: US (occurrence: US)
  Receive Date: 20130409
  Receipt Date: 20130409
  Transmission Date: 20140414
  Serious: No
  Sender: FDA-Public Use
  Company Number: US-PFIZER INC-2013110551

PATIENT
  Age: 34 Year
  Sex: Female

DRUGS (7)
  1. XANAX [Suspect]
     Dosage: UNK
  2. ZOLOFT [Suspect]
     Dosage: UNK
  3. PROZAC [Suspect]
     Dosage: UNK
  4. CYMBALTA [Suspect]
     Dosage: UNK
  5. PAXIL [Suspect]
     Dosage: UNK
  6. AMITRIPTYLINE [Suspect]
     Dosage: UNK
  7. VIIBRYD [Suspect]
     Dosage: UNK

REACTIONS (1)
  - Drug ineffective [Unknown]
